FAERS Safety Report 13568542 (Version 2)
Quarter: 2017Q2

REPORT INFORMATION
  Report Type: Spontaneous
  Country: US (occurrence: US)
  Receive Date: 20170522
  Receipt Date: 20170524
  Transmission Date: 20170830
  Serious: Yes (Hospitalization)
  Sender: FDA-Public Use
  Company Number: US-SA-2017SA089608

PATIENT
  Age: 26 Year
  Sex: Female

DRUGS (2)
  1. ENOXAPARIN SODIUM. [Suspect]
     Active Substance: ENOXAPARIN SODIUM
     Route: 065
  2. ENOXAPARIN SODIUM. [Suspect]
     Active Substance: ENOXAPARIN SODIUM
     Route: 065

REACTIONS (9)
  - Headache [Recovered/Resolved]
  - Hypertension [Recovered/Resolved]
  - Embolism venous [Recovered/Resolved]
  - Dizziness [Recovered/Resolved]
  - Mirror syndrome [Recovered/Resolved]
  - Vaginal haemorrhage [Recovered/Resolved]
  - Exposure during pregnancy [Unknown]
  - Asthenia [Recovered/Resolved]
  - Abdominal pain [Recovered/Resolved]
